FAERS Safety Report 4777177-1 (Version None)
Quarter: 2005Q3

REPORT INFORMATION
  Report Type: 
  Country: None (occurrence: None)
  Receive Date: 20050923
  Receipt Date: 20050912
  Transmission Date: 20060218
  Serious: Yes (Death, Hospitalization, Disabling)
  Sender: FDA-Public Use
  Company Number: GB-ROCHE-417609

PATIENT
  Age: 61 Year
  Sex: Female
  Weight: 60 kg

DRUGS (5)
  1. XELODA [Suspect]
     Indication: SMALL INTESTINE CARCINOMA METASTATIC
     Route: 048
     Dates: start: 20050714, end: 20050719
  2. MORPHINE [Concomitant]
     Indication: PAIN
     Dates: start: 20050711
  3. DOMPERIDON [Concomitant]
     Indication: ANTIEMETIC SUPPORTIVE CARE
     Dosage: AS NEEDED.
     Route: 048
     Dates: start: 20050714
  4. OXALIPLATIN [Concomitant]
     Indication: CHEMOTHERAPY
     Route: 042
  5. LANSOPRAZOLE [Concomitant]
     Indication: DUODENAL ULCER
     Dates: start: 19900615

REACTIONS (1)
  - DIHYDROPYRIMIDINE DEHYDROGENASE DEFICIENCY [None]
